FAERS Safety Report 6871820-9 (Version None)
Quarter: 2010Q3

REPORT INFORMATION
  Report Type: 
  Country: None (occurrence: None)
  Receive Date: 20100723
  Receipt Date: 20100715
  Transmission Date: 20110219
  Serious: Yes (Other)
  Sender: FDA-Public Use
  Company Number: B0666591A

PATIENT
  Age: 29 Year
  Sex: Male

DRUGS (2)
  1. AUGMENTIN '125' [Suspect]
     Indication: PHARYNGOTONSILLITIS
     Dosage: 170MG THREE TIMES PER DAY
     Route: 048
     Dates: start: 20100518, end: 20100523
  2. DALSY [Suspect]
     Indication: PHARYNGOTONSILLITIS
     Dosage: 130MG THREE TIMES PER DAY
     Route: 048
     Dates: start: 20100518, end: 20100523

REACTIONS (19)
  - BLISTER [None]
  - CONJUNCTIVITIS [None]
  - ERYTHEMA [None]
  - ERYTHEMA INFECTIOSUM [None]
  - ERYTHEMA MULTIFORME [None]
  - HERPES VIRUS INFECTION [None]
  - LIP EROSION [None]
  - MUCOSAL EROSION [None]
  - MUCOSAL INFLAMMATION [None]
  - NIKOLSKY'S SIGN [None]
  - ORAL DISORDER [None]
  - PRURITUS [None]
  - PYREXIA [None]
  - RASH PAPULAR [None]
  - RHINORRHOEA [None]
  - SKIN LESION [None]
  - STEVENS-JOHNSON SYNDROME [None]
  - STOMATITIS [None]
  - UPPER RESPIRATORY TRACT INFECTION [None]
